FAERS Safety Report 15385959 (Version 1)
Quarter: 2018Q3

REPORT INFORMATION
  Report Type: Spontaneous
  Country: US (occurrence: US)
  Receive Date: 20180914
  Receipt Date: 20180914
  Transmission Date: 20181010
  Serious: No
  Sender: FDA-Public Use
  Company Number: US-GLAXOSMITHKLINE-US2018162323

PATIENT
  Sex: Female

DRUGS (1)
  1. FLOVENT DISKUS [Suspect]
     Active Substance: FLUTICASONE PROPIONATE
     Indication: WRONG TECHNIQUE IN PRODUCT USAGE PROCESS
     Dosage: 2 PUFF(S), BID
     Route: 055

REACTIONS (1)
  - Wrong technique in product usage process [Unknown]
